FAERS Safety Report 7667522-1 (Version None)
Quarter: 2011Q3

REPORT INFORMATION
  Report Type: 
  Country: None (occurrence: None)
  Receive Date: 20110806
  Receipt Date: 20110524
  Transmission Date: 20111222
  Serious: No
  Sender: FDA-Public Use
  Company Number: US-ABBOTT-11P-163-0722470-00

PATIENT
  Sex: Male
  Weight: 103.51 kg

DRUGS (3)
  1. NIASPAN [Suspect]
     Indication: BLOOD TRIGLYCERIDES
     Dosage: AT BEDTIME
     Dates: start: 20110315
  2. FLONASE [Concomitant]
     Indication: PRODUCT USED FOR UNKNOWN INDICATION
  3. NIASPAN [Suspect]
     Indication: HIGH DENSITY LIPOPROTEIN

REACTIONS (6)
  - PRURITUS [None]
  - HYPERSENSITIVITY [None]
  - UPPER RESPIRATORY TRACT CONGESTION [None]
  - FLUSHING [None]
  - ERYTHEMA [None]
  - BURNING SENSATION [None]
